FAERS Safety Report 24983394 (Version 1)
Quarter: 2025Q1

REPORT INFORMATION
  Report Type: Report from Study
  Country: ES (occurrence: ES)
  Receive Date: 20250219
  Receipt Date: 20250219
  Transmission Date: 20250408
  Serious: Yes (Hospitalization)
  Sender: ABBVIE
  Company Number: ES-ABBVIE-6084913

PATIENT
  Age: 75 Year
  Sex: Male

DRUGS (2)
  1. CARBIDOPA\LEVODOPA [Suspect]
     Active Substance: CARBIDOPA\LEVODOPA
     Indication: Parkinson^s disease
     Route: 050
     Dates: start: 20230814
  2. CARBIDOPA\LEVODOPA [Suspect]
     Active Substance: CARBIDOPA\LEVODOPA
     Route: 050

REACTIONS (6)
  - Pleural effusion [Recovered/Resolved]
  - Stoma complication [Recovering/Resolving]
  - Stoma site discharge [Recovering/Resolving]
  - Influenza [Recovered/Resolved]
  - Feeling abnormal [Recovered/Resolved]
  - Wrong device [Unknown]

NARRATIVE: CASE EVENT DATE: 20240109
